FAERS Safety Report 18334852 (Version 1)
Quarter: 2020Q4

REPORT INFORMATION
  Report Type: Report from Study
  Country: US (occurrence: US)
  Receive Date: 20201001
  Receipt Date: 20201001
  Transmission Date: 20210113
  Serious: Yes (Other)
  Sender: FDA-Public Use
  Company Number: US-PFIZER INC-2020377051

PATIENT
  Age: 21 Year
  Sex: Female

DRUGS (9)
  1. HYDROMORPHONE HYDROCHLORIDE. [Interacting]
     Active Substance: HYDROMORPHONE HYDROCHLORIDE
     Dosage: UNK
  2. MESNA. [Interacting]
     Active Substance: MESNA
     Indication: NASOPHARYNGEAL CANCER
     Dosage: 400 MG/M2, DAILY (IMMEDIATELY FOLLOWING IFOSFAMIDE, AND AT FOUR AND SIX HOURS AFTER IFOSFAMIDE)
  3. DEXTROSE. [Concomitant]
     Active Substance: DEXTROSE
     Indication: FLUID REPLACEMENT
     Dosage: 1000 ML/M2 IN 1/3 NORMAL SALINE
     Route: 042
  4. ACETAMINOPHEN. [Interacting]
     Active Substance: ACETAMINOPHEN
     Dosage: UNK
  5. IFOSFAMIDE. [Interacting]
     Active Substance: IFOSFAMIDE
     Indication: NASOPHARYNGEAL CANCER
     Dosage: 1600 MG/M2, CYCLIC (OVER 15 MINUTES DAILY FOR FIVE DAYS, ADMINISTERED AT 21- TO 28-DAY INTERVALS)
     Route: 042
  6. PROCHLORPERAZINE. [Interacting]
     Active Substance: PROCHLORPERAZINE
     Dosage: UNK
  7. MORPHINE SULFATE. [Interacting]
     Active Substance: MORPHINE SULFATE
     Dosage: UNK
  8. HYDROXYZINE PAMOATE. [Suspect]
     Active Substance: HYDROXYZINE PAMOATE
     Dosage: UNK
  9. AMITRIPTYLINE [Interacting]
     Active Substance: AMITRIPTYLINE
     Dosage: UNK

REACTIONS (2)
  - Neurotoxicity [Unknown]
  - Drug interaction [Unknown]
